FAERS Safety Report 13917707 (Version 1)
Quarter: 2017Q3

REPORT INFORMATION
  Report Type: Spontaneous
  Country: BR (occurrence: BR)
  Receive Date: 20170829
  Receipt Date: 20170829
  Transmission Date: 20171127
  Serious: Yes (Other)
  Sender: FDA-Public Use
  Company Number: BR-GILEAD-2017-0290355

PATIENT
  Sex: Female

DRUGS (3)
  1. RIBAVIRINE [Concomitant]
     Active Substance: RIBAVIRIN
  2. DACLATASVIR. [Concomitant]
     Active Substance: DACLATASVIR
  3. SOVALDI [Suspect]
     Active Substance: SOFOSBUVIR
     Indication: PRODUCT USED FOR UNKNOWN INDICATION
     Route: 065

REACTIONS (1)
  - Hallucination [Unknown]
